FAERS Safety Report 7115562-3 (Version None)
Quarter: 2010Q4

REPORT INFORMATION
  Report Type: 
  Country: None (occurrence: None)
  Receive Date: 20101122
  Receipt Date: 20101109
  Transmission Date: 20110411
  Serious: Yes (Hospitalization)
  Sender: FDA-Public Use
  Company Number: IT-PFIZER INC-2010153441

PATIENT
  Age: 66 Year
  Sex: Female

DRUGS (5)
  1. OTREON [Suspect]
     Indication: PHARYNGITIS
     Dosage: 200 MG, DAILY
     Route: 048
     Dates: start: 20101023, end: 20101023
  2. SANDIMMUNE [Concomitant]
     Indication: ACUTE GENERALISED EXANTHEMATOUS PUSTULOSIS
     Dosage: 100 MG, DAILY
     Route: 048
     Dates: start: 20080101, end: 20101023
  3. SANDIMMUNE [Concomitant]
     Dosage: 200 MG, DAILY
     Route: 048
     Dates: start: 20101023
  4. VALSARTAN  AND HYDROCHLOROTHIAZIDE [Concomitant]
     Indication: HYPERTENSION
     Dosage: 160/12.5 MG, DAILY
     Route: 048
  5. LANSOX [Concomitant]
     Dosage: UNK
     Route: 048

REACTIONS (1)
  - PUSTULAR PSORIASIS [None]
